FAERS Safety Report 7048423-9 (Version None)
Quarter: 2010Q4

REPORT INFORMATION
  Report Type: 
  Country: None (occurrence: None)
  Receive Date: 20101015
  Receipt Date: 20101015
  Transmission Date: 20110411
  Serious: Yes (Other)
  Sender: FDA-Public Use
  Company Number: None

PATIENT
  Age: 60 Year
  Sex: Male
  Weight: 63.5036 kg

DRUGS (1)
  1. TRAZODONE HCL [Suspect]
     Indication: SLEEP DISORDER
     Dosage: 100 MG 1X DAY ORAL
     Route: 048
     Dates: start: 20100801, end: 20101001

REACTIONS (3)
  - GASTRIC DISORDER [None]
  - HEADACHE [None]
  - PRODUCT ODOUR ABNORMAL [None]
